FAERS Safety Report 5843105-0 (Version None)
Quarter: 2008Q3

REPORT INFORMATION
  Report Type: 
  Country: None (occurrence: None)
  Receive Date: 20080812
  Receipt Date: 20080812
  Transmission Date: 20090109
  Serious: Yes (Other)
  Sender: FDA-Public Use
  Company Number: None

PATIENT
  Age: 63 Year
  Sex: Female
  Weight: 86.1834 kg

DRUGS (2)
  1. RELAFEN [Suspect]
     Indication: MYALGIA
     Dosage: 1 500 MG 2X DAY PO
     Route: 048
     Dates: start: 20080805, end: 20080811
  2. RELAFEN [Suspect]
     Indication: NECK PAIN
     Dosage: 1 500 MG 2X DAY PO
     Route: 048
     Dates: start: 20080805, end: 20080811

REACTIONS (8)
  - ARTHRALGIA [None]
  - CELLULITIS [None]
  - DYSSTASIA [None]
  - GAIT DISTURBANCE [None]
  - JOINT SWELLING [None]
  - MUSCULOSKELETAL PAIN [None]
  - OEDEMA PERIPHERAL [None]
  - PAIN IN EXTREMITY [None]
